FAERS Safety Report 23630531 (Version 1)
Quarter: 2024Q1

REPORT INFORMATION
  Report Type: Spontaneous
  Country: US (occurrence: US)
  Receive Date: 20240314
  Receipt Date: 20240314
  Transmission Date: 20240410
  Serious: Yes (Hospitalization, Other)
  Sender: FDA-Public Use
  Company Number: US-SUN PHARMACEUTICAL INDUSTRIES LTD-2024R1-435710

PATIENT
  Age: 46 Year
  Sex: Female

DRUGS (1)
  1. PREDNISONE [Suspect]
     Active Substance: PREDNISONE
     Indication: Haemolytic anaemia
     Dosage: UNK
     Route: 065

REACTIONS (5)
  - Bone marrow failure [Unknown]
  - Erythroid maturation arrest [Unknown]
  - Haemolysis [Unknown]
  - Myelosuppression [Unknown]
  - Therapeutic response decreased [Unknown]
